FAERS Safety Report 24157720 (Version 1)
Quarter: 2024Q3

REPORT INFORMATION
  Report Type: Report from Study
  Country: US (occurrence: US)
  Receive Date: 20240731
  Receipt Date: 20240731
  Transmission Date: 20241016
  Serious: Yes (Hospitalization, Other)
  Sender: UCB
  Company Number: US-UCBSA-2024038485

PATIENT
  Sex: Female

DRUGS (2)
  1. BRIVARACETAM [Suspect]
     Active Substance: BRIVARACETAM
     Indication: Seizure
     Dosage: 100 MILLIGRAM, 2X/DAY (BID)
  2. NAYZILAM [Concomitant]
     Active Substance: MIDAZOLAM
     Indication: Product used for unknown indication
     Dosage: UNK

REACTIONS (6)
  - Clostridium difficile infection [Recovered/Resolved]
  - Loss of consciousness [Recovered/Resolved]
  - Diabetic coma [Unknown]
  - Rehabilitation therapy [Unknown]
  - Peroneal nerve palsy [Unknown]
  - Tracheostomy [Unknown]

NARRATIVE: CASE EVENT DATE: 20230101
